FAERS Safety Report 14003157 (Version 1)
Quarter: 2017Q3

REPORT INFORMATION
  Report Type: Spontaneous
  Country: US (occurrence: US)
  Receive Date: 20170922
  Receipt Date: 20170922
  Transmission Date: 20171128
  Serious: No
  Sender: FDA-Public Use
  Company Number: US-MAYNE PHARMA-2016MYN001572

PATIENT
  Weight: 93.98 kg

DRUGS (2)
  1. CLONIDINE. [Suspect]
     Active Substance: CLONIDINE
     Dosage: MG/DAY
     Route: 062
     Dates: start: 20160726
  2. CLONIDINE. [Suspect]
     Active Substance: CLONIDINE
     Indication: HYPERTENSION
     Dosage: 0.1MG/DAY
     Route: 062
     Dates: start: 20160708, end: 20160726

REACTIONS (3)
  - Drug ineffective [Unknown]
  - Blood pressure inadequately controlled [Unknown]
  - Intentional product misuse [Unknown]
